FAERS Safety Report 8156909-9 (Version None)
Quarter: 2012Q1

REPORT INFORMATION
  Report Type: 
  Country: None (occurrence: None)
  Receive Date: 20120222
  Receipt Date: 20120215
  Transmission Date: 20120608
  Serious: Yes (Death, Hospitalization, Other)
  Sender: FDA-Public Use
  Company Number: US-ACTELION-A-US2012-60381

PATIENT

DRUGS (18)
  1. HYDROCHLOROTHIAZIDE [Concomitant]
  2. ASPIRIN [Concomitant]
  3. LACTULOSE [Concomitant]
  4. LISINOPRIL [Concomitant]
  5. PLAVIX [Concomitant]
  6. GLIPIZIDE [Concomitant]
  7. MINOXIDIL [Concomitant]
  8. NIFEDIPINE [Concomitant]
  9. VALSARTAN [Concomitant]
  10. CLONIDINE [Concomitant]
  11. PEPCID [Concomitant]
  12. TRACLEER [Suspect]
     Indication: PULMONARY ARTERIAL HYPERTENSION
     Dosage: UNK
     Route: 048
     Dates: start: 20100504
  13. LASIX [Concomitant]
  14. HYDRALAZINE HCL [Concomitant]
  15. VENTAVIS [Suspect]
     Indication: PULMONARY ARTERIAL HYPERTENSION
     Dosage: UNK
     Route: 055
     Dates: start: 20110824, end: 20111201
  16. CALCIUM CHANNEL BLOCKERS [Concomitant]
  17. SPIRIVA [Concomitant]
  18. NEURONTIN [Concomitant]

REACTIONS (13)
  - LEUKOCYTOSIS [None]
  - ASTHENIA [None]
  - FAILURE TO THRIVE [None]
  - MYOCARDIAL INFARCTION [None]
  - HYPERTENSION [None]
  - HYPERKALAEMIA [None]
  - MENTAL STATUS CHANGES [None]
  - CORONARY ARTERY DISEASE [None]
  - VOMITING [None]
  - SEPTIC SHOCK [None]
  - HYPOTENSION [None]
  - DEATH [None]
  - SEPSIS [None]
